FAERS Safety Report 13345009 (Version 4)
Quarter: 2017Q3

REPORT INFORMATION
  Report Type: Spontaneous
  Country: US (occurrence: US)
  Receive Date: 20170317
  Receipt Date: 20170705
  Transmission Date: 20171127
  Serious: No
  Sender: FDA-Public Use
  Company Number: US-PFIZER INC-2017113005

PATIENT
  Age: 75 Year
  Sex: Male
  Weight: 93 kg

DRUGS (26)
  1. DOCUSATE [Concomitant]
     Active Substance: DOCUSATE
     Indication: CONSTIPATION
     Dosage: 3 DF, 1X/DAY; 50/8.6MG TABLET, THREE TABLETS AT NIGHT
     Dates: start: 2014
  2. METOPROLOL TARTRATE. [Concomitant]
     Active Substance: METOPROLOL TARTRATE
     Dosage: 50 MG, 2X/DAY
     Dates: start: 2015
  3. OXYCODONE HYDROCHLORIDE. [Concomitant]
     Active Substance: OXYCODONE HYDROCHLORIDE
     Dosage: 25 MG, DAILY; 5MG TABLET, FIVE TIMES A DAY
     Dates: start: 1985
  4. LYRICA [Suspect]
     Active Substance: PREGABALIN
     Indication: SPINAL CORD INJURY
     Dosage: 100 MG, 3X/DAY
     Dates: end: 2016
  5. AZITHROMYCIN ANHYDROUS. [Concomitant]
     Active Substance: AZITHROMYCIN ANHYDROUS
     Dosage: 250 MG, 1X/DAY
     Dates: start: 2015
  6. MUCINEX [Concomitant]
     Active Substance: GUAIFENESIN
     Indication: LUNG DISORDER
     Dosage: 600 MG, 2X/DAY
     Dates: start: 2015
  7. TIZANIDINE. [Concomitant]
     Active Substance: TIZANIDINE
     Dosage: 1X/DAY; THEM ALL AT BEDTIME
  8. TIZANIDINE. [Concomitant]
     Active Substance: TIZANIDINE
     Dosage: UNK
     Dates: start: 2003
  9. LYRICA [Suspect]
     Active Substance: PREGABALIN
     Dosage: 150 MG, 3X/DAY
     Dates: start: 2013
  10. AMMONIUM LACTATE. [Concomitant]
     Active Substance: AMMONIUM LACTATE
     Indication: SKIN DISORDER
     Dosage: 12% CREAM
     Dates: start: 2014
  11. CARISOPRODOL. [Concomitant]
     Active Substance: CARISOPRODOL
     Indication: MUSCLE SPASMS
     Dosage: 350 MG, 3X/DAY
     Dates: start: 2012
  12. EPINEPHRINE. [Concomitant]
     Active Substance: EPINEPHRINE
     Indication: ALLERGY TO ARTHROPOD STING
     Dosage: EPINEPHRINE PEN
     Dates: start: 1952
  13. GUAIFENESIN. [Concomitant]
     Active Substance: GUAIFENESIN
     Dosage: 600 MG, 2X/DAY
     Dates: start: 2014
  14. IBUPROFEN. [Concomitant]
     Active Substance: IBUPROFEN
     Indication: ARTHRITIS
  15. PROVENTIL [Concomitant]
     Active Substance: ALBUTEROL
     Dosage: 200 MG, 2X/DAY
     Dates: start: 2015
  16. ALBUTEROL. [Concomitant]
     Active Substance: ALBUTEROL
     Dosage: DAILY; 90MCG 200D ORAL, FOUR TO FIVE PUFFS A DAY
     Dates: start: 2013
  17. MORPHINE [Concomitant]
     Active Substance: MORPHINE
     Dosage: 150 MG, DAILY
  18. TIZANIDINE. [Concomitant]
     Active Substance: TIZANIDINE
     Indication: SLEEP DISORDER
     Dosage: 4 MG, 3X/DAY
  19. ACETYLCYSTEINE. [Concomitant]
     Active Substance: ACETYLCYSTEINE
     Indication: LUNG DISORDER
     Dosage: DAILY; 20%, THREE TIMES DAILY, SOMETIMES FOUR
     Dates: start: 2015
  20. ALBUTEROL. [Concomitant]
     Active Substance: ALBUTEROL
     Dosage: 3X/DAY; SOLUTION, USES IT THREE TIMES A DAY WITH HIS MACHINE
  21. LIPITOR [Concomitant]
     Active Substance: ATORVASTATIN CALCIUM
     Dosage: 40 MG, 1X/DAY AT NIGHT
     Dates: start: 1989
  22. MORPHINE [Concomitant]
     Active Substance: MORPHINE
     Indication: PAIN
     Dosage: 300 MG, DAILY
     Dates: start: 1985
  23. LYRICA [Suspect]
     Active Substance: PREGABALIN
     Indication: MUSCLE SPASMS
     Dosage: 150 MG, 3X/DAY
     Route: 048
     Dates: start: 2016
  24. LASIX [Concomitant]
     Active Substance: FUROSEMIDE
     Dosage: UNK, 1X/DAY (AM)
  25. FUROSEMIDE. [Concomitant]
     Active Substance: FUROSEMIDE
     Dosage: 40 MG, 2X/DAY
     Dates: start: 2011
  26. IBUPROFEN. [Concomitant]
     Active Substance: IBUPROFEN
     Indication: INFLAMMATION
     Dosage: 600 MG, AS NEEDED
     Dates: start: 2012

REACTIONS (4)
  - Dry skin [Not Recovered/Not Resolved]
  - Psoriasis [Not Recovered/Not Resolved]
  - Rash macular [Not Recovered/Not Resolved]
  - Skin lesion [Not Recovered/Not Resolved]

NARRATIVE: CASE EVENT DATE: 201702
